FAERS Safety Report 12190396 (Version 1)
Quarter: 2016Q1

REPORT INFORMATION
  Report Type: Spontaneous
  Country: US (occurrence: None)
  Receive Date: 20160317
  Receipt Date: 20160317
  Transmission Date: 20160526
  Serious: Yes (Life-Threatening, Hospitalization, Disabling, Other)
  Sender: FDA-Public Use
  Company Number: None

PATIENT
  Age: 37 Year
  Sex: Female
  Weight: 68.04 kg

DRUGS (7)
  1. LORAZEPAM. [Concomitant]
     Active Substance: LORAZEPAM
  2. ATENOLOL. [Concomitant]
     Active Substance: ATENOLOL
  3. EFFEXOR [Concomitant]
     Active Substance: VENLAFAXINE HYDROCHLORIDE
  4. IRON TABLETS TABLET [Concomitant]
     Active Substance: IRON
  5. SIMVASTATIN. [Concomitant]
     Active Substance: SIMVASTATIN
  6. TERBUTALINE [Suspect]
     Active Substance: TERBUTALINE
     Indication: PREMATURE LABOUR
     Dosage: 2 OR 3 MONTHS TAKEN BY MOUTH
     Route: 048
  7. TERBUTALINE [Suspect]
     Active Substance: TERBUTALINE
     Indication: PROPHYLAXIS
     Dosage: 2 OR 3 MONTHS TAKEN BY MOUTH
     Route: 048

REACTIONS (14)
  - Dizziness [None]
  - Hypercholesterolaemia [None]
  - Stress [None]
  - Caesarean section [None]
  - Insomnia [None]
  - Chest pain [None]
  - Impaired driving ability [None]
  - Impaired work ability [None]
  - Depression [None]
  - Generalised anxiety disorder [None]
  - Hypertension [None]
  - Hyperglycaemia [None]
  - Maternal exposure during pregnancy [None]
  - Vertigo [None]

NARRATIVE: CASE EVENT DATE: 20160314
